FAERS Safety Report 7099320-4 (Version None)
Quarter: 2010Q4

REPORT INFORMATION
  Report Type: 
  Country: None (occurrence: None)
  Receive Date: 20101112
  Receipt Date: 20080710
  Transmission Date: 20110411
  Serious: No
  Sender: FDA-Public Use
  Company Number: US-KINGPHARMUSA00001-K200800819

PATIENT
  Age: 32 Year
  Sex: Male
  Weight: 74.785 kg

DRUGS (5)
  1. AVINZA [Suspect]
     Indication: BACK PAIN
     Dosage: 30 MG, QD
     Route: 048
     Dates: start: 20080603, end: 20080611
  2. OXYCONTIN [Concomitant]
     Indication: BACK PAIN
     Dosage: UNK, BID
     Route: 048
  3. OXYCODONE HCL [Concomitant]
     Indication: BREAKTHROUGH PAIN
     Dosage: 15 MG, TID
     Route: 048
  4. VALIUM [Concomitant]
     Indication: INSOMNIA
     Dosage: 5 MG, QHS
     Route: 048
  5. MOBIC [Concomitant]
     Indication: BACK PAIN
     Dosage: UNK, UNK
     Route: 048

REACTIONS (5)
  - CHEST DISCOMFORT [None]
  - HEADACHE [None]
  - NAUSEA [None]
  - URINARY RETENTION [None]
  - VOMITING [None]
